FAERS Safety Report 9247750 (Version 2)
Quarter: 2013Q3

REPORT INFORMATION
  Report Type: Spontaneous
  Country: PH (occurrence: PH)
  Receive Date: 20130423
  Receipt Date: 20130726
  Transmission Date: 20140515
  Serious: No
  Sender: FDA-Public Use
  Company Number: PH-UCBSA-084003

PATIENT
  Sex: 0

DRUGS (1)
  1. DEPONIT [Suspect]
     Dosage: UNKNOWN DOSE, DOSAGE FORM :250
     Route: 061

REACTIONS (2)
  - Dermatitis contact [Unknown]
  - Papule [Unknown]
